FAERS Safety Report 24789000 (Version 3)
Quarter: 2025Q3

REPORT INFORMATION
  Report Type: Spontaneous
  Country: US (occurrence: US)
  Receive Date: 20241230
  Receipt Date: 20250811
  Transmission Date: 20251020
  Serious: No
  Sender: SANOFI AVENTIS
  Company Number: US-SA-2024SA381977

PATIENT
  Age: 61 Year
  Sex: Male
  Weight: 67.12 kg

DRUGS (12)
  1. DUPIXENT [Suspect]
     Active Substance: DUPILUMAB
     Indication: Neurodermatitis
     Dosage: 300 MG, QOW
     Route: 058
     Dates: start: 20241115
  2. NEMLUVIO [Suspect]
     Active Substance: NEMOLIZUMAB-ILTO
  3. AVAPRO [Concomitant]
     Active Substance: IRBESARTAN
  4. FISH OIL [Concomitant]
     Active Substance: FISH OIL
  5. MAGNESIUM [Concomitant]
     Active Substance: MAGNESIUM
  6. MOUNJARO [Concomitant]
     Active Substance: TIRZEPATIDE
  7. VITAMINS [Concomitant]
     Active Substance: VITAMINS
  8. VITAMIN D3 [Concomitant]
     Active Substance: CHOLECALCIFEROL
  9. VYTORIN [Concomitant]
     Active Substance: EZETIMIBE\SIMVASTATIN
  10. OZEMPIC [Concomitant]
     Active Substance: SEMAGLUTIDE
  11. METFORMIN HYDROCHLORIDE [Concomitant]
     Active Substance: METFORMIN HYDROCHLORIDE
  12. OPZELURA [Concomitant]
     Active Substance: RUXOLITINIB PHOSPHATE

REACTIONS (4)
  - Eye discharge [Unknown]
  - Asthenia [Recovered/Resolved]
  - Myalgia [Recovered/Resolved]
  - Arthralgia [Recovered/Resolved]

NARRATIVE: CASE EVENT DATE: 20241101
